FAERS Safety Report 21822936 (Version 1)
Quarter: 2023Q1

REPORT INFORMATION
  Report Type: Spontaneous
  Country: PT (occurrence: PT)
  Receive Date: 20230105
  Receipt Date: 20230105
  Transmission Date: 20230417
  Serious: Yes (Hospitalization)
  Sender: FDA-Public Use
  Company Number: PT-SERVIER-S22011237

PATIENT
  Age: 68 Year
  Sex: Female

DRUGS (4)
  1. AMLODIPINE [Suspect]
     Active Substance: AMLODIPINE BESYLATE
     Indication: Hypertension
     Dosage: 10 MILLIGRAM, QD, 10 MG DAILY
     Route: 065
  2. PERINDOPRIL [Suspect]
     Active Substance: PERINDOPRIL
     Indication: Hypertension
     Dosage: 10 MILLIGRAM, QD, 10 MG DAILY
     Route: 048
  3. INDAPAMIDE [Suspect]
     Active Substance: INDAPAMIDE
     Indication: Hypertension
     Dosage: 1.5 MILLIGRAM, QD, 1.5 MG
     Route: 065
  4. NIFEDIPINE [Suspect]
     Active Substance: NIFEDIPINE
     Indication: Hypertension
     Dosage: 30 MILLIGRAM, Q2D, 30 MG (120 MG DAILY)
     Route: 065

REACTIONS (2)
  - Hypotension [Recovered/Resolved]
  - Intentional product use issue [Unknown]

NARRATIVE: CASE EVENT DATE: 20220101
